FAERS Safety Report 4513880-6 (Version None)
Quarter: 2004Q4

REPORT INFORMATION
  Report Type: 
  Country: None (occurrence: None)
  Receive Date: 20041130
  Receipt Date: 20040920
  Transmission Date: 20050328
  Serious: No
  Sender: FDA-Public Use
  Company Number: US-GLAXOSMITHKLINE-A0526450A

PATIENT
  Age: 48 Year
  Sex: Female

DRUGS (7)
  1. WELLBUTRIN XL [Suspect]
     Indication: DEPRESSION
     Dosage: 150MG PER DAY
     Route: 048
     Dates: start: 20040901
  2. ALLEGRA [Concomitant]
  3. LEVOXYL [Concomitant]
  4. MONOPRIL [Concomitant]
  5. HYDROCHLOROTHIAZIDE [Concomitant]
  6. CELEBREX [Concomitant]
  7. CRESTOR [Concomitant]

REACTIONS (2)
  - DIZZINESS [None]
  - FEELING HOT [None]
